FAERS Safety Report 13047343 (Version 2)
Quarter: 2017Q1

REPORT INFORMATION
  Report Type: Report from Study
  Country: IT (occurrence: IT)
  Receive Date: 20161220
  Receipt Date: 20170105
  Transmission Date: 20170428
  Serious: Yes (Hospitalization, Other)
  Sender: FDA-Public Use
  Company Number: IT-VERTEX PHARMACEUTICALS-2016-000461

PATIENT
  Age: 47 Year
  Sex: Male
  Weight: 59 kg

DRUGS (11)
  1. SODIORAL [Concomitant]
     Dosage: UNK
     Dates: start: 20150724
  2. CLORDESMETHYLDIAZEPAM [Concomitant]
     Active Substance: DIAZEPAM
     Dosage: UNK, BID
  3. SALBUTAMOL [Concomitant]
     Active Substance: ALBUTEROL
     Dosage: 2 DF, UNK
     Route: 055
     Dates: start: 20160121
  4. BROMHEXINE CHLORIDATE [Concomitant]
     Dosage: 2 DF, BID
     Dates: start: 20131213
  5. SALBUTAMOL [Concomitant]
     Active Substance: ALBUTEROL
     Indication: DYSPNOEA
     Dosage: 2 PUFFS, BID
     Dates: start: 20050414
  6. SALBUTAMOL [Concomitant]
     Active Substance: ALBUTEROL
     Dosage: EIGHT DROPS, BID
     Dates: start: 20080925
  7. ORKAMBI [Suspect]
     Active Substance: IVACAFTOR\LUMACAFTOR
     Indication: CYSTIC FIBROSIS
     Dosage: 2 DF, BID
     Route: 048
     Dates: start: 20160121, end: 20160413
  8. ORKAMBI [Suspect]
     Active Substance: IVACAFTOR\LUMACAFTOR
     Dosage: 1 DF, BID
     Route: 048
     Dates: start: 20160413
  9. HYANEB [Concomitant]
     Dosage: UNK, BID
     Dates: start: 20121207
  10. CREON [Concomitant]
     Active Substance: PANCRELIPASE AMYLASE\PANCRELIPASE LIPASE\PANCRELIPASE PROTEASE
  11. URSODEOXYCHOLIC AC [Concomitant]
     Dosage: 1 DF, BID

REACTIONS (9)
  - Constipation [Recovered/Resolved]
  - Pain in extremity [Recovered/Resolved]
  - Fatigue [Recovered/Resolved]
  - Dyspnoea [Recovered/Resolved]
  - Weight decreased [Recovered/Resolved]
  - Flatulence [Recovered/Resolved]
  - Pyrexia [Recovered/Resolved]
  - Diarrhoea [Recovered/Resolved]
  - Cholelithiasis [Recovered/Resolved]

NARRATIVE: CASE EVENT DATE: 20160121
